FAERS Safety Report 5617580-0 (Version None)
Quarter: 2008Q1

REPORT INFORMATION
  Report Type: 
  Country: None (occurrence: None)
  Receive Date: 20080207
  Receipt Date: 20070907
  Transmission Date: 20080703
  Serious: No
  Sender: FDA-Public Use
  Company Number: A0679699A

PATIENT
  Age: 88 Year
  Sex: Female

DRUGS (3)
  1. PAROXETINE [Suspect]
     Indication: DEPRESSION
     Dosage: 20MG PER DAY
     Route: 048
     Dates: start: 20070817, end: 20070820
  2. ALPRAZOLAM [Concomitant]
  3. PAXIL CR [Concomitant]

REACTIONS (4)
  - ABDOMINAL PAIN UPPER [None]
  - HEADACHE [None]
  - MALAISE [None]
  - PAIN IN EXTREMITY [None]
